FAERS Safety Report 25113623 (Version 1)
Quarter: 2025Q1

REPORT INFORMATION
  Report Type: Report from Study
  Country: US (occurrence: US)
  Receive Date: 20250324
  Receipt Date: 20250324
  Transmission Date: 20250408
  Serious: Yes (Hospitalization)
  Sender: ABBVIE
  Company Number: US-ABBVIE-6191086

PATIENT
  Sex: Female

DRUGS (2)
  1. VENCLEXTA [Suspect]
     Active Substance: VENETOCLAX
     Indication: B-cell small lymphocytic lymphoma
     Route: 048
     Dates: start: 202309
  2. VENCLEXTA [Suspect]
     Active Substance: VENETOCLAX
     Indication: B-cell small lymphocytic lymphoma
     Route: 048

REACTIONS (3)
  - Blood glucose abnormal [Unknown]
  - Blood sodium decreased [Unknown]
  - Blood potassium decreased [Unknown]
